FAERS Safety Report 19067959 (Version 2)
Quarter: 2021Q2

REPORT INFORMATION
  Report Type: Report from Study
  Country: EG (occurrence: EG)
  Receive Date: 20210329
  Receipt Date: 20210419
  Transmission Date: 20210717
  Serious: Yes (Other)
  Sender: FDA-Public Use
  Company Number: EG-REGENERON PHARMACEUTICALS, INC.-2021-35348

PATIENT

DRUGS (10)
  1. BRILIQUE [Concomitant]
     Active Substance: TICAGRELOR
     Dosage: 90 MG, BID
     Dates: start: 2019
  2. EYLEA [Suspect]
     Active Substance: AFLIBERCEPT
     Indication: DIABETIC RETINAL OEDEMA
     Dosage: OS, FIRST INJECTION
     Dates: start: 20190819, end: 20190819
  3. BRILIQUE [Concomitant]
     Active Substance: TICAGRELOR
     Indication: ANTICOAGULANT THERAPY
     Dosage: 1 DF, BID
     Dates: start: 2019
  4. GALVUS MET [Concomitant]
     Active Substance: METFORMIN HYDROCHLORIDE\VILDAGLIPTIN
     Indication: DIABETES MELLITUS
     Dosage: 1 DF, QD(NIGHT)
     Dates: start: 2015
  5. EYLEA [Suspect]
     Active Substance: AFLIBERCEPT
     Dosage: FIRST INJECTION OD, RECEIVED ON OS ALSO
     Dates: start: 202007, end: 202007
  6. CONCOR [Concomitant]
     Active Substance: BISOPROLOL FUMARATE
     Indication: HYPERTENSION
     Dosage: 1 DF, QD(AFTER BREAKFAST)
     Dates: start: 2015
  7. MILGA [Concomitant]
     Active Substance: BENFOTIAMINE\CYANOCOBALAMIN\PYRIDOXINE HYDROCHLORIDE
     Indication: NERVE INJURY
     Dosage: 1 DF, QD
     Dates: start: 2019
  8. EYLEA [Suspect]
     Active Substance: AFLIBERCEPT
     Dosage: OS
     Dates: start: 20191001, end: 20191001
  9. VIT B 12 [Concomitant]
     Active Substance: CYANOCOBALAMIN
     Indication: PRODUCT USED FOR UNKNOWN INDICATION
     Dosage: UNK
     Dates: start: 202007
  10. EYLEA [Suspect]
     Active Substance: AFLIBERCEPT
     Dosage: OU, RECEIVED A TOTAL OF 2 INJECTIONS TO OD AND 6 INJECTIONS TO OS
     Dates: start: 20210328

REACTIONS (8)
  - Eye haemorrhage [Not Recovered/Not Resolved]
  - Vision blurred [Recovering/Resolving]
  - Entropion [Not Recovered/Not Resolved]
  - Inappropriate schedule of product administration [Not Recovered/Not Resolved]
  - Eye inflammation [Recovering/Resolving]
  - Off label use [Not Recovered/Not Resolved]
  - Cataract operation [Unknown]
  - Drug ineffective [Unknown]

NARRATIVE: CASE EVENT DATE: 20190819
